FAERS Safety Report 7328484-X (Version None)
Quarter: 2011Q1

REPORT INFORMATION
  Report Type: 
  Country: None (occurrence: None)
  Receive Date: 20110303
  Receipt Date: 20110218
  Transmission Date: 20110831
  Serious: Yes (Hospitalization)
  Sender: FDA-Public Use
  Company Number: US-ENDO PHARMACEUTICALS INC.-PRAC20110001

PATIENT
  Sex: Female

DRUGS (1)
  1. PROPOXYPHENE HYDROCHLORIDE/ACETAMINOPHEN TABLETS [Suspect]
     Indication: PAIN
     Dosage: UNK
     Dates: start: 20101101, end: 20101101

REACTIONS (2)
  - CHEST PAIN [None]
  - ARRHYTHMIA [None]
